FAERS Safety Report 9839812 (Version 2)
Quarter: 2014Q1

REPORT INFORMATION
  Report Type: Spontaneous
  Country: US (occurrence: US)
  Receive Date: 20140124
  Receipt Date: 20140319
  Transmission Date: 20141002
  Serious: Yes (Other)
  Sender: FDA-Public Use
  Company Number: US-ASTRAZENECA-2014SE04515

PATIENT
  Age: 40 Year
  Sex: Female
  Weight: 53.1 kg

DRUGS (8)
  1. SYMBICORT [Suspect]
     Indication: ASTHMA
     Dosage: 160/4.5 MCG, 2 PUFFS BID
     Route: 055
  2. SINGULAIR [Concomitant]
     Indication: ASTHMA
  3. ZOLOFT [Concomitant]
     Indication: DEPRESSION
  4. WELBUTRIN [Concomitant]
     Indication: ANXIETY
  5. WELBUTRIN [Concomitant]
     Indication: DEPRESSION
  6. TOPAMAX [Concomitant]
     Indication: MIGRAINE
  7. MUCINEX OTC [Concomitant]
     Dosage: MAX STRENGTH, NR DAILY
  8. VITAMINS [Concomitant]
     Dosage: NR DAILY

REACTIONS (7)
  - Loss of consciousness [Recovering/Resolving]
  - Concussion [Recovering/Resolving]
  - Local swelling [Recovering/Resolving]
  - Bronchitis [Unknown]
  - Head injury [Unknown]
  - Headache [Unknown]
  - Headache [Unknown]
